FAERS Safety Report 4773876-6 (Version None)
Quarter: 2005Q3

REPORT INFORMATION
  Report Type: 
  Country: None (occurrence: None)
  Receive Date: 20050919
  Receipt Date: 20050902
  Transmission Date: 20060218
  Serious: Yes (Hospitalization, Other)
  Sender: FDA-Public Use
  Company Number: JP-2005-002674

PATIENT
  Age: 31 Year
  Sex: Female
  Weight: 55 kg

DRUGS (7)
  1. BETAFERON (INTERFERON BETA -1B) INJECTION, 960MIU [Suspect]
     Indication: MULTIPLE SCLEROSIS
     Dosage: SEE IMAGE
     Route: 058
     Dates: start: 20041030, end: 20050209
  2. BETAFERON (INTERFERON BETA -1B) INJECTION, 960MIU [Suspect]
     Indication: MULTIPLE SCLEROSIS
     Dosage: SEE IMAGE
     Route: 058
     Dates: start: 20050209, end: 20050220
  3. DANTRIUM [Concomitant]
  4. TRYPTANOL [Concomitant]
  5. LORAZEPAM [Concomitant]
  6. LANSOPRAZOLE [Concomitant]
  7. FLAVOXATE HCL [Concomitant]

REACTIONS (3)
  - HEPATITIS ACUTE [None]
  - HEPATITIS FULMINANT [None]
  - MULTIPLE SCLEROSIS RELAPSE [None]
